FAERS Safety Report 15950374 (Version 2)
Quarter: 2019Q2

REPORT INFORMATION
  Report Type: Report from Study
  Country: FR (occurrence: FR)
  Receive Date: 20190212
  Receipt Date: 20190506
  Transmission Date: 20190711
  Serious: Yes (Hospitalization)
  Sender: FDA-Public Use
  Company Number: FR-JNJFOC-20190209708

PATIENT
  Age: 78 Year
  Sex: Female
  Weight: 72 kg

DRUGS (3)
  1. TRABECTEDIN [Suspect]
     Active Substance: TRABECTEDIN
     Indication: SOFT TISSUE SARCOMA
     Dosage: CYCLE 1 TO 2, CUMULATIVE DOSE SINCE THE 1ST ADMINISTRATION: 4.5 MG.
     Route: 042
     Dates: start: 20181211, end: 20190122
  2. TRABECTEDIN [Suspect]
     Active Substance: TRABECTEDIN
     Route: 042
  3. ENDOXAN [Suspect]
     Active Substance: CYCLOPHOSPHAMIDE
     Indication: SOFT TISSUE SARCOMA
     Dosage: CYCLE 1 TO 2, CUMULATIVE DOSE SINCE THE 1ST ADMINISTRATION: 2800 MG.
     Route: 048
     Dates: start: 20181211, end: 20190128

REACTIONS (2)
  - Atrial fibrillation [Recovered/Resolved with Sequelae]
  - Cardiac failure [Recovered/Resolved with Sequelae]

NARRATIVE: CASE EVENT DATE: 20190204
